FAERS Safety Report 9639960 (Version 1)
Quarter: 2013Q4

REPORT INFORMATION
  Report Type: Spontaneous
  Country: US (occurrence: US)
  Receive Date: 20131023
  Receipt Date: 20131023
  Transmission Date: 20140711
  Serious: Yes (Death, Hospitalization)
  Sender: FDA-Public Use
  Company Number: US-PFIZER INC-2013300239

PATIENT
  Age: 38 Year
  Sex: Female

DRUGS (1)
  1. SIROLIMUS [Suspect]
     Dosage: 6 MG, DAILY

REACTIONS (6)
  - Toxicity to various agents [Fatal]
  - Renal failure acute [Fatal]
  - Hypoxia [Fatal]
  - Thrombocytopenia [Fatal]
  - Anaemia [Fatal]
  - Respiratory distress [Fatal]
